FAERS Safety Report 10328626 (Version 1)
Quarter: 2014Q3

REPORT INFORMATION
  Report Type: Spontaneous
  Country: US (occurrence: None)
  Receive Date: 20140717
  Receipt Date: 20140717
  Transmission Date: 20150326
  Serious: Yes (Other)
  Sender: FDA-Public Use
  Company Number: None

PATIENT
  Age: 45 Year
  Sex: Male
  Weight: 95.8 kg

DRUGS (32)
  1. ALTEPLASE INJ [Concomitant]
  2. MEDROXYPROGESTERONE [Concomitant]
     Active Substance: MEDROXYPROGESTERONE
  3. OLANZAPINE. [Concomitant]
     Active Substance: OLANZAPINE
  4. PREDNISONE. [Concomitant]
     Active Substance: PREDNISONE
  5. LORAZEPAM. [Concomitant]
     Active Substance: LORAZEPAM
  6. LAMOTRIGINE. [Concomitant]
     Active Substance: LAMOTRIGINE
  7. MULTIVITAMIN [Concomitant]
     Active Substance: VITAMINS
  8. INSULIN [Concomitant]
     Active Substance: INSULIN NOS
  9. FOLIC ACID. [Concomitant]
     Active Substance: FOLIC ACID
  10. SIMETHICONE [Concomitant]
     Active Substance: DIMETHICONE\SILICON DIOXIDE\SIMETHICONE
  11. METOCLOPRAMIDE. [Concomitant]
     Active Substance: METOCLOPRAMIDE
  12. SENNA [Concomitant]
     Active Substance: SENNA LEAF\SENNOSIDES\SENNOSIDES A AND B
  13. METROPROLOL TARTRATE [Concomitant]
  14. AMLODIPINE BESYLATE. [Concomitant]
     Active Substance: AMLODIPINE BESYLATE
  15. URSODIOL. [Concomitant]
     Active Substance: URSODIOL
  16. MAGNESIUM/SOY PROTEIN CHELATE [Concomitant]
  17. METHOL/ZINC OXIDE [Concomitant]
  18. DOCUSATE SODIUM. [Concomitant]
     Active Substance: DOCUSATE SODIUM
  19. BRENTUXIMAB VEDOTIN [Suspect]
     Active Substance: BRENTUXIMAB VEDOTIN
     Indication: ACUTE GRAFT VERSUS HOST DISEASE
     Route: 042
     Dates: start: 20140514
  20. MYCOPHENOLATE MOFETIL. [Concomitant]
     Active Substance: MYCOPHENOLATE MOFETIL
  21. LORTADINE [Concomitant]
  22. FILGRASTIM [Concomitant]
     Active Substance: FILGRASTIM
  23. POTASSIUM CHLORIDE. [Concomitant]
     Active Substance: POTASSIUM CHLORIDE
  24. MIRTAZAPINE. [Concomitant]
     Active Substance: MIRTAZAPINE
  25. CYCLOSPORINE. [Concomitant]
     Active Substance: CYCLOSPORINE
  26. FOSCAMET SODIUM [Concomitant]
  27. DIPHENYL DRAMINE [Concomitant]
  28. INSULIN SLIDING SCALE ASPART INJ [Concomitant]
  29. HEMORRHOIDAL [Concomitant]
     Active Substance: PHENYLEPHRINE HYDROCHLORIDE\WITCH HAZEL
  30. LEVALBUTEROL [Concomitant]
     Active Substance: LEVALBUTEROL
  31. POSACONAZOLE [Concomitant]
     Active Substance: POSACONAZOLE
  32. PANTOPRAZOLE INJ [Concomitant]

REACTIONS (8)
  - Small intestinal obstruction [None]
  - Gastrointestinal inflammation [None]
  - Abdominal discomfort [None]
  - Abdominal distension [None]
  - Nausea [None]
  - Condition aggravated [None]
  - Constipation [None]
  - Gastrointestinal motility disorder [None]

NARRATIVE: CASE EVENT DATE: 20140627
